FAERS Safety Report 15631712 (Version 1)
Quarter: 2018Q4

REPORT INFORMATION
  Report Type: Spontaneous
  Country: US (occurrence: US)
  Receive Date: 20181113
  Receipt Date: 20181113
  Transmission Date: 20190205
  Serious: Yes (Disabling)
  Sender: FDA-Public Use
  Company Number: None

PATIENT
  Age: 63 Year
  Sex: Female
  Weight: 81 kg

DRUGS (12)
  1. VITAMIN D [Concomitant]
     Active Substance: CHOLECALCIFEROL
  2. VITAMIN B COMPLEX [Concomitant]
     Active Substance: CYANOCOBALAMIN\DEXPANTHENOL\NIACINAMIDE\PYRIDOXINE HYDROCHLORIDE\RIBOFLAVIN 5^-PHOSPHATE SODIUM\THIAMINE HYDROCHLORIDE\VITAMIN B COMPLEX
  3. PYRIDOSTIGMINE BROMIDE. [Concomitant]
     Active Substance: PYRIDOSTIGMINE BROMIDE
  4. VITAMIN C [Concomitant]
     Active Substance: ASCORBIC ACID
  5. UNITHROID [Concomitant]
     Active Substance: LEVOTHYROXINE SODIUM
  6. IRON [Concomitant]
     Active Substance: IRON
  7. MULTI VITAMIN [Concomitant]
     Active Substance: VITAMINS
  8. PYRIDOSTIGMINE BROMIDE EXTENDED RELEASE [Suspect]
     Active Substance: PYRIDOSTIGMINE BROMIDE
     Indication: MYASTHENIC SYNDROME
     Dosage: ?          QUANTITY:1 TABLET(S);?
     Route: 048
     Dates: start: 20181020, end: 20181113
  9. XANAX [Concomitant]
     Active Substance: ALPRAZOLAM
  10. 3,4 DIAMINOPYRIDINE [Concomitant]
     Active Substance: AMIFAMPRIDINE
  11. CYTOMEL [Concomitant]
     Active Substance: LIOTHYRONINE SODIUM
  12. PYRIDOSTIGMINE BROMIDE ER [Concomitant]

REACTIONS (4)
  - Asthenia [None]
  - Product solubility abnormal [None]
  - Product substitution issue [None]
  - Product residue present [None]

NARRATIVE: CASE EVENT DATE: 20181020
